FAERS Safety Report 10692944 (Version 10)
Quarter: 2016Q3

REPORT INFORMATION
  Report Type: Report from Study
  Country: US (occurrence: US)
  Receive Date: 20150106
  Receipt Date: 20160719
  Transmission Date: 20161109
  Serious: Yes (Other)
  Sender: FDA-Public Use
  Company Number: US-AMGEN INC.-USASL2015000204

PATIENT
  Age: 45 Year
  Sex: Male

DRUGS (1)
  1. ENBREL [Suspect]
     Active Substance: ETANERCEPT
     Indication: ANKYLOSING SPONDYLITIS
     Dosage: 50 MG, QWK
     Route: 058
     Dates: start: 20140915

REACTIONS (13)
  - Sinus disorder [Unknown]
  - Sinus operation [Unknown]
  - Malaise [Unknown]
  - Musculoskeletal discomfort [Not Recovered/Not Resolved]
  - Drug dose omission [Recovered/Resolved]
  - Headache [Unknown]
  - Sinusitis [Not Recovered/Not Resolved]
  - Hypersensitivity [Recovering/Resolving]
  - Pain [Unknown]
  - Rhinorrhoea [Unknown]
  - Back pain [Not Recovered/Not Resolved]
  - Sinus congestion [Not Recovered/Not Resolved]
  - Drug ineffective [Unknown]

NARRATIVE: CASE EVENT DATE: 2014
